FAERS Safety Report 9515550 (Version 2)
Quarter: 2013Q3

REPORT INFORMATION
  Report Type: Spontaneous
  Country: GB (occurrence: None)
  Receive Date: 20130906
  Receipt Date: 20130910
  Transmission Date: 20140515
  Serious: Yes (Other)
  Sender: FDA-Public Use
  Company Number: AUR-APL-2013-07364

PATIENT
  Age: 43 Year
  Sex: Male

DRUGS (3)
  1. LEVETIRACETAM (LEVETIRACETAM) [Suspect]
     Indication: PRODUCT USED FOR UNKNOWN INDICATION
  2. LAMOTRIGINE (LAMOTRIGINE) [Concomitant]
  3. SODIUM VALPROATE (VALPROATE SODIUM) [Concomitant]

REACTIONS (1)
  - Aggression [None]
